FAERS Safety Report 4372051-7 (Version None)
Quarter: 2004Q2

REPORT INFORMATION
  Report Type: 
  Country: None (occurrence: None)
  Receive Date: 20040602
  Receipt Date: 20040519
  Transmission Date: 20050107
  Serious: Yes (Hospitalization)
  Sender: FDA-Public Use
  Company Number: 2004-DE-03004SI

PATIENT
  Age: 70 Year
  Sex: Male

DRUGS (11)
  1. MOBICOX(MELOXICAM)(TA) [Suspect]
     Indication: BACK PAIN
     Dosage: 7.5 MG (7.5 MG, 7,5 MG) PO
     Route: 048
     Dates: start: 20040322, end: 20040508
  2. ENALAPRIL MALEATE [Suspect]
     Indication: HYPERTENSION
     Dosage: 20 MG (20 MG) PO
     Route: 048
     Dates: end: 20040508
  3. ASPIRIN [Suspect]
     Indication: PROPHYLAXIS
     Dosage: 1000 MG (100 MG, 100 MG) PO
     Route: 048
  4. ZOLOFT [Concomitant]
  5. NORVASC [Concomitant]
  6. METFIN (TA) [Concomitant]
  7. STARLIX(NATEGLINIDE)(TA) [Concomitant]
  8. XATRAL(TA) [Concomitant]
  9. SORTIS9TA) [Concomitant]
  10. DAFALGAN(PARACETAMOL0 (TA) [Concomitant]
  11. NEUROTIN(TA) [Concomitant]

REACTIONS (2)
  - HYPERKALAEMIA [None]
  - RENAL FAILURE ACUTE [None]
